FAERS Safety Report 7200196-2 (Version None)
Quarter: 2010Q4

REPORT INFORMATION
  Report Type: 
  Country: None (occurrence: None)
  Receive Date: 20101228
  Receipt Date: 20101216
  Transmission Date: 20110411
  Serious: Yes (Other)
  Sender: FDA-Public Use
  Company Number: JP-PFIZER INC-2010142987

PATIENT
  Age: 57 Year
  Sex: Female
  Weight: 43 kg

DRUGS (6)
  1. LYRICA [Suspect]
     Indication: POST HERPETIC NEURALGIA
     Dosage: 75 MG, 1X/DAY
     Route: 048
     Dates: start: 20100705, end: 20100711
  2. LYRICA [Suspect]
     Dosage: 75 MG, 2X/DAY
     Route: 048
     Dates: start: 20100712, end: 20101006
  3. LYRICA [Suspect]
     Dosage: 75 MG, 1X/DAY
     Dates: start: 20101007
  4. DEPAKENE [Concomitant]
     Indication: WITHDRAWAL SYNDROME
     Dosage: 200 MG, 3X/DAY
     Route: 048
     Dates: start: 20090219
  5. NORTRIPTYLINE HCL [Concomitant]
     Indication: DEPRESSIVE SYMPTOM
     Dosage: 25 MG, 3X/DAY
     Route: 048
     Dates: start: 20090219
  6. OLMETEC [Concomitant]
     Indication: HYPERTENSION
     Dosage: 40 MG, 1X/DAY
     Route: 048
     Dates: start: 20090219

REACTIONS (1)
  - ALCOHOL WITHDRAWAL SYNDROME [None]
